FAERS Safety Report 24771080 (Version 1)
Quarter: 2024Q4

REPORT INFORMATION
  Report Type: Spontaneous
  Country: US (occurrence: None)
  Receive Date: 20241224
  Receipt Date: 20241224
  Transmission Date: 20250114
  Serious: Yes (Hospitalization)
  Sender: Public
  Company Number: None

PATIENT
  Sex: Female

DRUGS (1)
  1. TEZSPIRE [Suspect]
     Active Substance: TEZEPELUMAB-EKKO
     Indication: Asthma
     Dosage: FREQ: INJECT 1 PEN UNDER THE SKIN (SUBCUTANEOUS INJECTION) ONCE A MONTH?
     Route: 058
     Dates: start: 20230713

REACTIONS (1)
  - Hospitalisation [None]
